FAERS Safety Report 19099238 (Version 1)
Quarter: 2021Q2

REPORT INFORMATION
  Report Type: Spontaneous
  Country: US (occurrence: US)
  Receive Date: 20210406
  Receipt Date: 20210406
  Transmission Date: 20210717
  Serious: Yes (Other)
  Sender: FDA-Public Use
  Company Number: US-FRESENIUS KABI-FK202103409

PATIENT
  Sex: Female

DRUGS (1)
  1. XYLOCAINE?MPF [Suspect]
     Active Substance: LIDOCAINE HYDROCHLORIDE
     Indication: NERVE BLOCK
     Dosage: UNKNOWN

REACTIONS (1)
  - Drug ineffective [Unknown]
